FAERS Safety Report 17072484 (Version 11)
Quarter: 2023Q1

REPORT INFORMATION
  Report Type: Report from Study
  Country: CA (occurrence: CA)
  Receive Date: 20191125
  Receipt Date: 20230201
  Transmission Date: 20230417
  Serious: Yes (Hospitalization, Other)
  Sender: FDA-Public Use
  Company Number: PHHY2017CA070663

PATIENT
  Age: 89 Year
  Sex: Female

DRUGS (13)
  1. SANDOSTATIN LAR DEPOT [Suspect]
     Active Substance: OCTREOTIDE ACETATE
     Indication: Acromegaly
     Dosage: 30 MG, QMO (EVERY 4 WEEKS)
     Route: 030
     Dates: start: 19921002
  2. SANDOSTATIN LAR DEPOT [Suspect]
     Active Substance: OCTREOTIDE ACETATE
     Dosage: 30 MG, Q3W (EVERY 3 WEEKS)
     Route: 030
     Dates: start: 19921002
  3. SANDOSTATIN LAR DEPOT [Suspect]
     Active Substance: OCTREOTIDE ACETATE
     Dosage: 20 MG, QMO  (EVERY 4 WEEKS)
     Route: 030
  4. SANDOSTATIN LAR DEPOT [Suspect]
     Active Substance: OCTREOTIDE ACETATE
     Dosage: 30 MG, QMO  (EVERY 4 WEEKS)
     Route: 030
  5. SANDOSTATIN LAR DEPOT [Suspect]
     Active Substance: OCTREOTIDE ACETATE
     Dosage: 30 MG, Q3W (EVERY THREE WEEKS)
     Route: 030
     Dates: start: 20110510
  6. INDAPAMIDE [Suspect]
     Active Substance: INDAPAMIDE
     Indication: Product used for unknown indication
     Dosage: UNK
     Route: 065
  7. CELEBREX [Concomitant]
     Active Substance: CELECOXIB
     Indication: Arthralgia
     Dosage: UNK
     Route: 065
  8. AVAPRO [Concomitant]
     Active Substance: IRBESARTAN
     Indication: Product used for unknown indication
     Dosage: UNK
     Route: 065
  9. DILTIAZEM [Concomitant]
     Active Substance: DILTIAZEM
     Indication: Cardiac disorder
     Dosage: UNK
     Route: 065
  10. SYMBICORT [Concomitant]
     Active Substance: BUDESONIDE\FORMOTEROL FUMARATE DIHYDRATE
     Indication: Product used for unknown indication
     Dosage: UNK
     Route: 065
  11. VENTOLIN [Concomitant]
     Active Substance: ALBUTEROL SULFATE
     Indication: Product used for unknown indication
     Dosage: UNK
     Route: 065
  12. SOMAVERT [Concomitant]
     Active Substance: PEGVISOMANT
     Indication: Product used for unknown indication
     Dosage: UNK
     Route: 065
  13. PANTOPRAZOLE [Concomitant]
     Active Substance: PANTOPRAZOLE
     Indication: Product used for unknown indication
     Dosage: UNK
     Route: 048

REACTIONS (27)
  - Fall [Unknown]
  - Urinary tract infection [Unknown]
  - Illness [Unknown]
  - Cystitis [Recovering/Resolving]
  - Lower respiratory tract infection [Unknown]
  - Dyspnoea [Unknown]
  - Neoplasm progression [Unknown]
  - Hallucination [Unknown]
  - Brain neoplasm [Unknown]
  - Abnormal dreams [Unknown]
  - Blood pressure systolic increased [Unknown]
  - Nervousness [Unknown]
  - Contusion [Unknown]
  - Scratch [Unknown]
  - Foot fracture [Unknown]
  - Blood pressure increased [Unknown]
  - Gait inability [Unknown]
  - Muscular weakness [Unknown]
  - Pain [Unknown]
  - Faeces discoloured [Recovering/Resolving]
  - Asthenia [Recovering/Resolving]
  - Decreased appetite [Recovering/Resolving]
  - Headache [Recovered/Resolved]
  - Abdominal pain [Unknown]
  - Abdominal discomfort [Unknown]
  - Abdominal pain upper [Unknown]
  - Inappropriate schedule of product administration [Unknown]

NARRATIVE: CASE EVENT DATE: 20110510
